FAERS Safety Report 8790177 (Version 2)
Quarter: 2013Q4

REPORT INFORMATION
  Report Type: Spontaneous
  Country: US (occurrence: US)
  Receive Date: 20120917
  Receipt Date: 20131031
  Transmission Date: 20140711
  Serious: Yes (Other)
  Sender: FDA-Public Use
  Company Number: US-009507513-1209USA003380

PATIENT
  Age: 54 Year
  Sex: Male

DRUGS (11)
  1. ISENTRESS [Suspect]
     Route: 048
  2. SUSTIVA [Suspect]
     Route: 048
  3. BUPROPION HYDROCHLORIDE [Suspect]
     Route: 065
  4. LAMIVUDINE [Suspect]
     Route: 065
  5. CLONAZEPAM [Suspect]
     Route: 065
  6. ZOPICLONE [Suspect]
     Route: 065
  7. QUETIAPINE FUMARATE [Suspect]
     Route: 065
  8. REYATAZ [Suspect]
     Route: 065
  9. SERTRALINE HYDROCHLORIDE [Suspect]
     Route: 065
  10. KALETRA [Interacting]
     Route: 065
  11. VALPROIC ACID [Interacting]
     Route: 065

REACTIONS (2)
  - Drug interaction [Unknown]
  - Depression [Unknown]
